FAERS Safety Report 16956341 (Version 1)
Quarter: 2019Q4

REPORT INFORMATION
  Report Type: Spontaneous
  Country: US (occurrence: US)
  Receive Date: 20191024
  Receipt Date: 20191024
  Transmission Date: 20200122
  Serious: No
  Sender: FDA-Public Use
  Company Number: US-PFIZER INC-2019459584

PATIENT
  Age: 66 Year
  Sex: Female

DRUGS (1)
  1. SERTRALINE HCL [Suspect]
     Active Substance: SERTRALINE HYDROCHLORIDE
     Indication: MENOPAUSAL SYMPTOMS
     Dosage: UNK, (DOSE WAS INCREASED)
     Dates: start: 201908

REACTIONS (5)
  - Tri-iodothyronine increased [Unknown]
  - Product use in unapproved indication [Unknown]
  - Premenstrual syndrome [Unknown]
  - Insomnia [Unknown]
  - Hyperhidrosis [Unknown]
